FAERS Safety Report 19173376 (Version 1)
Quarter: 2021Q2

REPORT INFORMATION
  Report Type: Spontaneous
  Country: US (occurrence: US)
  Receive Date: 20210422
  Receipt Date: 20210422
  Transmission Date: 20210717
  Serious: Yes (Other)
  Sender: FDA-Public Use
  Company Number: None

PATIENT
  Age: 32 Year
  Sex: Female
  Weight: 112.49 kg

DRUGS (2)
  1. LEVOTHYROXINE 75 MCG [Suspect]
     Active Substance: LEVOTHYROXINE
     Indication: AUTOIMMUNE THYROIDITIS
     Route: 048
  2. LEVOXYL [Suspect]
     Active Substance: LEVOTHYROXINE SODIUM
     Indication: AUTOIMMUNE THYROIDITIS
     Route: 048

REACTIONS (12)
  - Somnolence [None]
  - Anxiety [None]
  - Panic attack [None]
  - Palpitations [None]
  - Agitation [None]
  - Paraesthesia oral [None]
  - Dyspnoea [None]
  - Paranoia [None]
  - Therapy interrupted [None]
  - Cardiac flutter [None]
  - Therapy change [None]
  - Nervousness [None]

NARRATIVE: CASE EVENT DATE: 20200424
